FAERS Safety Report 5478464-4 (Version None)
Quarter: 2007Q4

REPORT INFORMATION
  Report Type: 
  Country: None (occurrence: None)
  Receive Date: 20071005
  Receipt Date: 20070926
  Transmission Date: 20080405
  Serious: Yes (Death)
  Sender: FDA-Public Use
  Company Number: US-BRACCO-BDI-010248

PATIENT
  Age: 85 Year
  Sex: Male

DRUGS (2)
  1. ISOVUE-128 [Suspect]
     Indication: CHEST X-RAY ABNORMAL
     Route: 042
     Dates: start: 20070919, end: 20070919
  2. ISOVUE-128 [Suspect]
     Route: 042
     Dates: start: 20070919, end: 20070919

REACTIONS (3)
  - BLOOD PRESSURE IMMEASURABLE [None]
  - COUGH [None]
  - LOSS OF CONSCIOUSNESS [None]
